FAERS Safety Report 8024208-1 (Version None)
Quarter: 2012Q1

REPORT INFORMATION
  Report Type: 
  Country: None (occurrence: None)
  Receive Date: 20120105
  Receipt Date: 20120102
  Transmission Date: 20120608
  Serious: Yes (Disabling, Other)
  Sender: FDA-Public Use
  Company Number: PHHY2011FR101980

PATIENT
  Sex: Female
  Weight: 50 kg

DRUGS (2)
  1. ST. JOHN'S WORT [Concomitant]
  2. ZOLEDRONOC ACID [Suspect]
     Indication: OSTEOPOROSIS POSTMENOPAUSAL
     Route: 042
     Dates: start: 20111115

REACTIONS (8)
  - PYREXIA [None]
  - INSOMNIA [None]
  - PAIN IN JAW [None]
  - CHILLS [None]
  - SCIATICA [None]
  - CHEST PAIN [None]
  - MYALGIA [None]
  - DIZZINESS [None]
